FAERS Safety Report 7680457-3 (Version None)
Quarter: 2011Q3

REPORT INFORMATION
  Report Type: 
  Country: None (occurrence: None)
  Receive Date: 20110812
  Receipt Date: 20110801
  Transmission Date: 20111222
  Serious: Yes (Hospitalization, Other)
  Sender: FDA-Public Use
  Company Number: US-JNJFOC-20070306134

PATIENT
  Sex: Male
  Weight: 82.5 kg

DRUGS (2)
  1. INFLIXIMAB [Suspect]
     Route: 042
     Dates: start: 20040406
  2. INFLIXIMAB [Suspect]
     Indication: COLITIS ULCERATIVE
     Dosage: 5 DOSES TOTAL
     Route: 042
     Dates: start: 20040521

REACTIONS (3)
  - INTESTINAL RESECTION [None]
  - INTESTINAL OBSTRUCTION [None]
  - COLECTOMY [None]
